FAERS Safety Report 23640003 (Version 1)
Quarter: 2024Q1

REPORT INFORMATION
  Report Type: Spontaneous
  Country: US (occurrence: US)
  Receive Date: 20240316
  Receipt Date: 20240316
  Transmission Date: 20240409
  Serious: No
  Sender: FDA-Public Use
  Company Number: US-SANOFI-01976389

PATIENT
  Age: 75 Year
  Sex: Male

DRUGS (3)
  1. LANTUS SOLOSTAR [Suspect]
     Active Substance: INSULIN GLARGINE
     Indication: Diabetes mellitus
     Dosage: 18 TO 20 UNITS
     Route: 065
     Dates: start: 202403, end: 202403
  2. LANTUS SOLOSTAR [Suspect]
     Active Substance: INSULIN GLARGINE
     Dosage: 14 IU
     Dates: start: 202403
  3. TRESIBA [Concomitant]
     Active Substance: INSULIN DEGLUDEC

REACTIONS (2)
  - Injection site pain [Unknown]
  - Intentional product misuse [Unknown]

NARRATIVE: CASE EVENT DATE: 20240301
